FAERS Safety Report 9674695 (Version 1)
Quarter: 2013Q4

REPORT INFORMATION
  Report Type: Other
  Country: GB (occurrence: GB)
  Receive Date: 20131107
  Receipt Date: 20131107
  Transmission Date: 20140711
  Serious: Yes (Other)
  Sender: FDA-Public Use
  Company Number: GB-GLENMARK GENERICS INC.-2013GMK007403

PATIENT
  Age: 75 Year
  Sex: Female
  Weight: 68 kg

DRUGS (4)
  1. GABAPENTIN [Suspect]
     Indication: PRODUCT USED FOR UNKNOWN INDICATION
     Dosage: UNK
  2. CO-CODAMOL [Concomitant]
     Indication: BACK PAIN
     Dosage: UNK, OD
     Route: 048
     Dates: start: 20081205, end: 20121015
  3. CO-CODAMOL [Concomitant]
     Indication: SCOLIOSIS
  4. DOXAZOSIN [Concomitant]
     Indication: BLOOD PRESSURE INCREASED
     Dosage: 1 DF, OD
     Dates: start: 20081127, end: 20110221

REACTIONS (5)
  - Mood swings [Recovered/Resolved]
  - Mood altered [Recovered/Resolved]
  - Irritability [Recovered/Resolved]
  - Depression [Recovered/Resolved]
  - Amnesia [Recovered/Resolved]
